FAERS Safety Report 8597090-1 (Version None)
Quarter: 2012Q3

REPORT INFORMATION
  Report Type: 
  Country: None (occurrence: None)
  Receive Date: 20120816
  Receipt Date: 20120806
  Transmission Date: 20120928
  Serious: Yes (Hospitalization)
  Sender: FDA-Public Use
  Company Number: US-BIOGENIDEC-2012BI026021

PATIENT
  Age: 49 Year
  Sex: Female

DRUGS (1)
  1. INTERFERON BETA-1A [Suspect]
     Indication: MULTIPLE SCLEROSIS
     Route: 030
     Dates: start: 19960101

REACTIONS (5)
  - SURGERY [None]
  - PAIN IN EXTREMITY [None]
  - CHOLECYSTECTOMY [None]
  - MUSCLE SPASMS [None]
  - PAIN [None]
